FAERS Safety Report 14026513 (Version 1)
Quarter: 2017Q3

REPORT INFORMATION
  Report Type: Spontaneous
  Country: TH (occurrence: TH)
  Receive Date: 20170929
  Receipt Date: 20170929
  Transmission Date: 20171128
  Serious: Yes (Other)
  Sender: FDA-Public Use
  Company Number: TH-ORION CORPORATION ORION PHARMA-ENT 2017-0149

PATIENT
  Age: 76 Year
  Sex: Male

DRUGS (1)
  1. COMTAN [Suspect]
     Active Substance: ENTACAPONE
     Indication: PARKINSON^S DISEASE
     Dosage: STRENGTH: 200 MG
     Route: 048

REACTIONS (12)
  - Dyskinesia [Unknown]
  - Posterior cortical atrophy [Unknown]
  - Disorientation [Unknown]
  - Freezing phenomenon [Unknown]
  - Bradykinesia [Unknown]
  - Neuropsychiatric symptoms [Unknown]
  - Insomnia [Unknown]
  - Muscle rigidity [Unknown]
  - Cognitive disorder [Unknown]
  - Slow response to stimuli [Unknown]
  - Lacunar infarction [Unknown]
  - Hallucination [Unknown]
